FAERS Safety Report 9691530 (Version 1)
Quarter: 2013Q4

REPORT INFORMATION
  Report Type: Spontaneous
  Country: US (occurrence: US)
  Receive Date: 20131115
  Receipt Date: 20131115
  Transmission Date: 20140711
  Serious: Yes (Hospitalization, Other)
  Sender: FDA-Public Use
  Company Number: DZ-ASTRAZENECA-2013SE82417

PATIENT
  Age: 76 Year
  Sex: Male
  Weight: 70.3 kg

DRUGS (17)
  1. ZOLADEX [Suspect]
     Indication: PROSTATIC SPECIFIC ANTIGEN INCREASED
     Route: 058
     Dates: start: 1996, end: 2009
  2. ZOLADEX [Suspect]
     Indication: PROSTATIC SPECIFIC ANTIGEN INCREASED
     Route: 058
     Dates: start: 20130106
  3. LISINOPRIL [Suspect]
     Indication: HYPERTENSION
     Route: 048
     Dates: start: 2009
  4. LEUPROLIDE [Suspect]
     Route: 065
     Dates: start: 2009
  5. UNKNOWN MEDICATION [Suspect]
     Route: 065
  6. OXYGEN [Concomitant]
     Indication: CHRONIC OBSTRUCTIVE PULMONARY DISEASE
     Dosage: 2.5 LITERS CONT, AT HOME
     Route: 045
     Dates: start: 2005
  7. OXYGEN [Concomitant]
     Indication: CHRONIC OBSTRUCTIVE PULMONARY DISEASE
     Dosage: 3 LITERS CONT, OUTSIDE OF HOME
     Route: 045
     Dates: start: 2005
  8. SIMBASTATIN [Concomitant]
     Indication: BLOOD CHOLESTEROL INCREASED
     Route: 048
  9. ALBUTERAL SULFATE [Concomitant]
     Indication: CHRONIC OBSTRUCTIVE PULMONARY DISEASE
     Dosage: PRN
     Route: 055
     Dates: start: 2006
  10. COMBIVENT [Concomitant]
     Dosage: 20MG. 100 MCG Q6H
     Route: 055
  11. COMBIVENT [Concomitant]
     Dosage: 20 MG. 100 MCG DAILY
     Route: 055
     Dates: start: 2013
  12. ADVAIR [Concomitant]
     Dosage: 250 50 BID
     Route: 055
     Dates: start: 2008, end: 2010
  13. ADVAIR [Concomitant]
     Dosage: 250 50 BID
     Route: 055
     Dates: start: 2010, end: 2011
  14. ADVAIR [Concomitant]
     Dosage: 250 50 BID
     Route: 055
     Dates: start: 2011
  15. HYDROCHLOROTHIAZIDE [Concomitant]
     Indication: POLLAKIURIA
     Route: 048
     Dates: start: 2011
  16. VITAMIN D [Concomitant]
     Indication: BONE DENSITY DECREASED
     Route: 048
     Dates: start: 2010
  17. ASPIRIN [Concomitant]
     Indication: CARDIAC DISORDER
     Route: 048
     Dates: start: 2008

REACTIONS (12)
  - Malaise [Recovered/Resolved]
  - Malignant neoplasm progression [Not Recovered/Not Resolved]
  - Sleep disorder due to general medical condition, insomnia type [Recovering/Resolving]
  - Throat tightness [Recovering/Resolving]
  - Dyspnoea [Recovered/Resolved]
  - Muscle spasms [Recovered/Resolved]
  - Diverticulitis [Not Recovered/Not Resolved]
  - Iron deficiency [Not Recovered/Not Resolved]
  - Delusion [Not Recovered/Not Resolved]
  - Hypertension [Not Recovered/Not Resolved]
  - Off label use [Not Recovered/Not Resolved]
  - Therapy cessation [Recovered/Resolved]
